FAERS Safety Report 4310744-8 (Version None)
Quarter: 2004Q1

REPORT INFORMATION
  Report Type: 
  Country: None (occurrence: None)
  Receive Date: 20040303
  Receipt Date: 20040223
  Transmission Date: 20041129
  Serious: Yes (Death, Hospitalization)
  Sender: FDA-Public Use
  Company Number: WAES 0402USA01744

PATIENT
  Age: 33 Year
  Sex: Male
  Weight: 48 kg

DRUGS (1)
  1. STROMECTOL [Suspect]
     Route: 048
     Dates: start: 20040104, end: 20040104

REACTIONS (7)
  - ABNORMAL BEHAVIOUR [None]
  - ASTHENIA [None]
  - BLOOD SMEAR TEST ABNORMAL [None]
  - DEATH [None]
  - DIARRHOEA [None]
  - ENCEPHALOPATHY [None]
  - VERTIGO [None]
